FAERS Safety Report 12633993 (Version 2)
Quarter: 2016Q3

REPORT INFORMATION
  Report Type: Spontaneous
  Country: US (occurrence: US)
  Receive Date: 20160809
  Receipt Date: 20160920
  Transmission Date: 20161109
  Serious: Yes (Hospitalization)
  Sender: FDA-Public Use
  Company Number: US-US WORLDMEDS, LLC-USW201607-000540

PATIENT
  Age: 66 Year
  Sex: Male
  Weight: 85 kg

DRUGS (17)
  1. LIPITOR [Concomitant]
     Active Substance: ATORVASTATIN CALCIUM
     Dates: start: 20150918
  2. REQUIP XL [Concomitant]
     Active Substance: ROPINIROLE HYDROCHLORIDE
     Dates: start: 20091116
  3. STARLIX [Concomitant]
     Active Substance: NATEGLINIDE
     Dates: start: 20110104
  4. AVAPRO [Concomitant]
     Active Substance: IRBESARTAN
     Dates: start: 20051109
  5. COMTAN [Concomitant]
     Active Substance: ENTACAPONE
     Dates: start: 20130826
  6. SINEMET [Concomitant]
     Active Substance: CARBIDOPA\LEVODOPA
     Dates: start: 20060606
  7. AZILECT [Concomitant]
     Active Substance: RASAGILINE MESYLATE
     Dates: start: 20071008
  8. APOKYN [Suspect]
     Active Substance: APOMORPHINE HYDROCHLORIDE
     Indication: PARKINSON^S DISEASE
     Dates: start: 20091019, end: 20160903
  9. METFORMIN [Concomitant]
     Active Substance: METFORMIN HYDROCHLORIDE
     Dates: start: 20120110
  10. TIGAN [Concomitant]
     Active Substance: TRIMETHOBENZAMIDE HYDROCHLORIDE
     Indication: NAUSEA
     Dates: start: 20150610
  11. ALLOPURINOL. [Concomitant]
     Active Substance: ALLOPURINOL
     Dates: start: 20051109
  12. ARTANE [Concomitant]
     Active Substance: TRIHEXYPHENIDYL HYDROCHLORIDE
     Dates: start: 20071008
  13. LEXAPRO [Concomitant]
     Active Substance: ESCITALOPRAM OXALATE
     Dates: start: 20150918
  14. NUVIGIL [Concomitant]
     Active Substance: ARMODAFINIL
     Dates: start: 20130416
  15. REQUIP XL [Concomitant]
     Active Substance: ROPINIROLE HYDROCHLORIDE
     Dates: start: 20140219
  16. APOKYN [Suspect]
     Active Substance: APOMORPHINE HYDROCHLORIDE
     Indication: MUSCLE SPASMS
  17. IRBESARTAN. [Concomitant]
     Active Substance: IRBESARTAN
     Dates: start: 20160108

REACTIONS (2)
  - Leg amputation [Unknown]
  - Sepsis [Unknown]

NARRATIVE: CASE EVENT DATE: 20160723
